FAERS Safety Report 8134025-X (Version None)
Quarter: 2012Q1

REPORT INFORMATION
  Report Type: 
  Country: None (occurrence: None)
  Receive Date: 20120214
  Receipt Date: 20120203
  Transmission Date: 20120608
  Serious: Yes (Hospitalization, Other)
  Sender: FDA-Public Use
  Company Number: IT-BRISTOL-MYERS SQUIBB COMPANY-16362774

PATIENT
  Age: 36 Year
  Sex: Female
  Weight: 49 kg

DRUGS (5)
  1. AMILORIDE HCL AND HYDROCHLOROTHIAZIDE [Suspect]
     Dosage: 1 DF = HYDROCHLOROTHIAZIDE 5MG+ AMILORIDE 50MG
  2. BISACODYL [Suspect]
  3. METFORMIN HCL [Suspect]
  4. LEVOTHYROXINE SODIUM [Suspect]
  5. METFORMIN HCL [Suspect]

REACTIONS (7)
  - LACTIC ACIDOSIS [None]
  - RENAL FAILURE ACUTE [None]
  - HYPONATRAEMIA [None]
  - HYPOKALAEMIA [None]
  - CONSTIPATION [None]
  - HYPOCALCAEMIA [None]
  - ENDOCRINE DISORDER [None]
